FAERS Safety Report 7343449-X (Version None)
Quarter: 2011Q1

REPORT INFORMATION
  Report Type: 
  Country: None (occurrence: None)
  Receive Date: 20110310
  Receipt Date: 20110223
  Transmission Date: 20110831
  Serious: Yes (Hospitalization, Other)
  Sender: FDA-Public Use
  Company Number: US-BAYER-201034309NA

PATIENT
  Sex: Female
  Weight: 68 kg

DRUGS (12)
  1. VENTOLIN [Concomitant]
  2. ZANTAC [Concomitant]
  3. LORATADINE [Concomitant]
  4. UNCODEABLE ^UNCLASSIFIABLE^ [Concomitant]
  5. TRAZODONE HCL [Concomitant]
  6. YAZ [Suspect]
     Indication: PRODUCT USED FOR UNKNOWN INDICATION
     Route: 048
     Dates: start: 20090101, end: 20091101
  7. CLONIDINE [Concomitant]
  8. ASMANEX TWISTHALER [Concomitant]
  9. DIAZEPAM [Concomitant]
  10. YASMIN [Suspect]
     Indication: PRODUCT USED FOR UNKNOWN INDICATION
     Route: 048
     Dates: start: 20090101, end: 20091101
  11. NASACORT [Concomitant]
  12. RANITIDINE [Concomitant]

REACTIONS (4)
  - CHOLELITHIASIS [None]
  - NAUSEA [None]
  - CHOLECYSTITIS [None]
  - ABDOMINAL PAIN [None]
